FAERS Safety Report 11166066 (Version 1)
Quarter: 2015Q2

REPORT INFORMATION
  Report Type: Spontaneous
  Country: FR (occurrence: FR)
  Receive Date: 20150604
  Receipt Date: 20150604
  Transmission Date: 20150821
  Serious: Yes (Hospitalization, Other)
  Sender: FDA-Public Use
  Company Number: FR-BRISTOL-MYERS SQUIBB COMPANY-BMS-2015-035126

PATIENT
  Age: 56 Year
  Sex: Male

DRUGS (3)
  1. REYATAZ [Suspect]
     Active Substance: ATAZANAVIR SULFATE
     Indication: PRODUCT USED FOR UNKNOWN INDICATION
     Dosage: 1 DF, QD
     Route: 048
     Dates: start: 20101201
  2. NORVIR [Suspect]
     Active Substance: RITONAVIR
     Indication: PRODUCT USED FOR UNKNOWN INDICATION
     Dosage: 1 DF, QD
     Route: 048
     Dates: start: 20101201
  3. TRUVADA [Suspect]
     Active Substance: EMTRICITABINE\TENOFOVIR DISOPROXIL FUMARATE
     Indication: PRODUCT USED FOR UNKNOWN INDICATION
     Dosage: 1 DF, QD
     Route: 048
     Dates: start: 20101201, end: 20150204

REACTIONS (8)
  - Weight decreased [Unknown]
  - Abdominal pain upper [Unknown]
  - Dyspepsia [Unknown]
  - Jaundice [Unknown]
  - Dysphagia [Unknown]
  - Hypotension [Unknown]
  - Vomiting [Unknown]
  - Renal tubular disorder [Unknown]

NARRATIVE: CASE EVENT DATE: 20150204
